FAERS Safety Report 18729620 (Version 1)
Quarter: 2021Q1

REPORT INFORMATION
  Report Type: Spontaneous
  Country: US (occurrence: US)
  Receive Date: 20210112
  Receipt Date: 20210112
  Transmission Date: 20210419
  Serious: Yes (Hospitalization)
  Sender: FDA-Public Use
  Company Number: None

PATIENT
  Age: 87 Year
  Sex: Male

DRUGS (3)
  1. BAMLANIVIMAB. [Suspect]
     Active Substance: BAMLANIVIMAB
     Indication: COVID-19
     Dosage: ?          OTHER FREQUENCY:ONCE;?
     Route: 041
  2. ACETAMINOPHEN. [Concomitant]
     Active Substance: ACETAMINOPHEN
     Dates: start: 20210111
  3. OXYMETAZOLINE [Concomitant]
     Active Substance: OXYMETAZOLINE
     Dates: start: 20210111

REACTIONS (4)
  - Pyrexia [None]
  - Sinus bradycardia [None]
  - Troponin increased [None]
  - Ventricular extrasystoles [None]

NARRATIVE: CASE EVENT DATE: 20210111
